FAERS Safety Report 7374307-2 (Version None)
Quarter: 2011Q1

REPORT INFORMATION
  Report Type: 
  Country: None (occurrence: None)
  Receive Date: 20110325
  Receipt Date: 20110310
  Transmission Date: 20110831
  Serious: Yes (Hospitalization, Other)
  Sender: FDA-Public Use
  Company Number: US-BAYER-2011-006290

PATIENT
  Sex: Female
  Weight: 71.655 kg

DRUGS (1)
  1. YAZ [Suspect]
     Indication: PRODUCT USED FOR UNKNOWN INDICATION
     Dosage: UNK
     Dates: start: 20090201, end: 20090628

REACTIONS (4)
  - DYSPNOEA [None]
  - IRRITABLE BOWEL SYNDROME [None]
  - PAIN [None]
  - PULMONARY EMBOLISM [None]
